FAERS Safety Report 8845347 (Version 1)
Quarter: 2012Q4

REPORT INFORMATION
  Report Type: 
  Country: FR (occurrence: FR)
  Receive Date: 20121017
  Receipt Date: 20121017
  Transmission Date: 20130627
  Serious: Yes (Disabling, Other)
  Sender: FDA-Public Use
  Company Number: FR-PFIZER INC-2012252539

PATIENT
  Age: 67 Year
  Sex: Male

DRUGS (10)
  1. TAHOR [Suspect]
     Dosage: UNK
     Route: 048
     Dates: start: 2001, end: 201111
  2. GLIVEC [Suspect]
     Dosage: 600 mg, 1x/day
     Route: 048
     Dates: start: 200203, end: 201111
  3. KARDEGIC [Concomitant]
     Dosage: 160 mg, 1x/day
     Route: 048
     Dates: start: 2011
  4. EXFORGE [Concomitant]
     Dosage: [amlodipine 10 mg]/ [valsartan 160 mg], 1x/day
     Route: 048
     Dates: start: 2001
  5. BISOPROLOL FUMARATE [Concomitant]
     Dosage: 2.5 mg, 1x/day
     Route: 048
  6. PLAVIX [Concomitant]
     Dosage: 75 mg, 1x/day
     Route: 048
     Dates: start: 201202
  7. EZETROL [Concomitant]
     Dosage: 10 mg, 1x/day
     Route: 048
  8. LASILIX [Concomitant]
     Dosage: 40 mg, 1x/day
     Route: 048
  9. INIPOMP [Concomitant]
     Dosage: 20 mg, 1x/day
     Route: 048
     Dates: start: 2001
  10. COVERSYL [Concomitant]
     Dosage: 4 mg, 1x/day
     Route: 048
     Dates: start: 2001

REACTIONS (10)
  - Polyneuropathy [Not Recovered/Not Resolved]
  - Condition aggravated [Not Recovered/Not Resolved]
  - Lumbar spinal stenosis [Unknown]
  - Intermittent claudication [Unknown]
  - Gait disturbance [Unknown]
  - Oedema peripheral [Unknown]
  - Oedema peripheral [Unknown]
  - Muscular weakness [Unknown]
  - Pain in extremity [Unknown]
  - Pain in extremity [Unknown]
